FAERS Safety Report 19690397 (Version 3)
Quarter: 2021Q3

REPORT INFORMATION
  Report Type: Spontaneous
  Country: IT (occurrence: IT)
  Receive Date: 20210812
  Receipt Date: 20210909
  Transmission Date: 20211014
  Serious: Yes (Other)
  Sender: FDA-Public Use
  Company Number: IT-LUPIN PHARMACEUTICALS INC.-2021-14326

PATIENT
  Age: 31 Year
  Sex: Female

DRUGS (10)
  1. DENOSUMAB [Suspect]
     Active Substance: DENOSUMAB
     Indication: PRODUCT USED FOR UNKNOWN INDICATION
     Dosage: 120 MILLIGRAM, RECEIVED A SINGLE DOSE AT WEEK?4 OF GESTATION
     Route: 065
  2. PANTOPRAZOLE [Suspect]
     Active Substance: PANTOPRAZOLE
     Indication: PRODUCT USED FOR UNKNOWN INDICATION
     Dosage: UNK
     Route: 065
  3. VITAMIN D3 [Suspect]
     Active Substance: CHOLECALCIFEROL
     Indication: PRODUCT USED FOR UNKNOWN INDICATION
     Dosage: UNK
     Route: 065
  4. BETAMETHASONE. [Suspect]
     Active Substance: BETAMETHASONE
     Indication: MATERNAL THERAPY TO ENHANCE FOETAL LUNG MATURITY
     Dosage: 12 MILLIGRAM, QD, RECEIVED A SINGLE COURSE OF BETAMETHASONE 12MG EVERY 24 HOURS FOR TWO DOSES, AT 33
     Route: 065
  5. ALECTINIB. [Suspect]
     Active Substance: ALECTINIB
     Indication: LUNG NEOPLASM MALIGNANT
     Dosage: 600 MILLIGRAM, BID
     Route: 065
  6. CARDIOASPIRIN [Suspect]
     Active Substance: ASPIRIN
     Indication: PRODUCT USED FOR UNKNOWN INDICATION
     Dosage: UNK
     Route: 065
  7. PREDNISONE. [Suspect]
     Active Substance: PREDNISONE
     Indication: PRODUCT USED FOR UNKNOWN INDICATION
     Dosage: UNK
     Route: 065
  8. CALCIUM [Suspect]
     Active Substance: CALCIUM
     Indication: PRODUCT USED FOR UNKNOWN INDICATION
     Dosage: UNK, CALCIUM?CARBONATE
     Route: 065
  9. FOLIC ACID. [Suspect]
     Active Substance: FOLIC ACID
     Indication: PRODUCT USED FOR UNKNOWN INDICATION
     Dosage: UNK
     Route: 065
  10. NADROPARIN [Suspect]
     Active Substance: NADROPARIN
     Indication: PRODUCT USED FOR UNKNOWN INDICATION
     Dosage: UNK
     Route: 065

REACTIONS (3)
  - Premature delivery [Unknown]
  - Normal newborn [Unknown]
  - Exposure during pregnancy [Unknown]
